FAERS Safety Report 14892688 (Version 3)
Quarter: 2018Q2

REPORT INFORMATION
  Report Type: Spontaneous
  Country: US (occurrence: US)
  Receive Date: 20180514
  Receipt Date: 20180626
  Transmission Date: 20180711
  Serious: Yes (Hospitalization, Other)
  Sender: FDA-Public Use
  Company Number: US-GLAXOSMITHKLINE-US2018081760

PATIENT
  Age: 77 Year
  Sex: Female

DRUGS (14)
  1. METOPROLOL SUCCINATE. [Concomitant]
     Active Substance: METOPROLOL SUCCINATE
  2. LEVOTHYROXINE. [Concomitant]
     Active Substance: LEVOTHYROXINE
  3. OXYGEN. [Concomitant]
     Active Substance: OXYGEN
  4. ELIQUIS [Concomitant]
     Active Substance: APIXABAN
  5. AMLODIPINE [Concomitant]
     Active Substance: AMLODIPINE BESYLATE
  6. QUINAPRIL. [Concomitant]
     Active Substance: QUINAPRIL
  7. RANITIDINE. [Concomitant]
     Active Substance: RANITIDINE
  8. ADVAIR DISKUS [Suspect]
     Active Substance: FLUTICASONE PROPIONATE\SALMETEROL XINAFOATE
     Indication: CHRONIC OBSTRUCTIVE PULMONARY DISEASE
     Dosage: 1 PUFF(S), BID
     Dates: start: 201602
  9. POTASSIUM CHLORIDE. [Concomitant]
     Active Substance: POTASSIUM CHLORIDE
  10. TRIAMTERENE. [Concomitant]
     Active Substance: TRIAMTERENE
  11. FLOVENT DISKUS [Suspect]
     Active Substance: FLUTICASONE PROPIONATE
     Indication: DYSPNOEA
     Dosage: 1 PUFF(S), BID
     Dates: start: 20180402
  12. ATORVASTATIN [Concomitant]
     Active Substance: ATORVASTATIN
  13. FUROSEMIDE. [Concomitant]
     Active Substance: FUROSEMIDE
  14. ANORO ELLIPTA [Suspect]
     Active Substance: UMECLIDINIUM BROMIDE\VILANTEROL TRIFENATATE
     Indication: DYSPNOEA
     Dosage: 1 PUFF(S), QD
     Dates: start: 20180402

REACTIONS (15)
  - Dyspnoea [Recovered/Resolved]
  - Fatigue [Recovered/Resolved]
  - Influenza [Recovered/Resolved]
  - Blood potassium decreased [Recovered/Resolved]
  - Cough [Recovered/Resolved]
  - Cardiac failure [Recovering/Resolving]
  - Tricuspid valve incompetence [Unknown]
  - Oxygen saturation decreased [Recovering/Resolving]
  - Atrial fibrillation [Recovering/Resolving]
  - Fluid retention [Recovering/Resolving]
  - Dyspnoea exertional [Unknown]
  - Heart rate abnormal [Recovering/Resolving]
  - Anxiety [Recovering/Resolving]
  - Drug ineffective [Unknown]
  - Listless [Recovered/Resolved]

NARRATIVE: CASE EVENT DATE: 201702
